FAERS Safety Report 5372757-7 (Version None)
Quarter: 2007Q2

REPORT INFORMATION
  Report Type: 
  Country: None (occurrence: None)
  Receive Date: 20070626
  Receipt Date: 20070618
  Transmission Date: 20071010
  Serious: Yes (Life-Threatening)
  Sender: FDA-Public Use
  Company Number: GXKR2007GB05248

PATIENT
  Sex: Female

DRUGS (10)
  1. GABAPENTIN [Suspect]
  2. AMITRIPTYLINE HCL [Suspect]
  3. AMLODIPINE [Concomitant]
  4. ASPIRIN [Concomitant]
  5. C-CODAMOL (CODEINE PHOSPHATE, PARACETAMOL) [Concomitant]
  6. FUROSEMIDE [Concomitant]
  7. METFORMIN (METFORMIN) [Concomitant]
  8. RAMIPRIL [Concomitant]
  9. SOTALOL HCL [Concomitant]
  10. SIMVASTATIN [Concomitant]

REACTIONS (1)
  - PANCYTOPENIA [None]
